FAERS Safety Report 16142735 (Version 2)
Quarter: 2019Q2

REPORT INFORMATION
  Report Type: Spontaneous
  Country: JP (occurrence: JP)
  Receive Date: 20190401
  Receipt Date: 20190502
  Transmission Date: 20190711
  Serious: Yes (Other)
  Sender: FDA-Public Use
  Company Number: JP-BRISTOL-MYERS SQUIBB COMPANY-BMS-2019-029768

PATIENT
  Age: 77 Year
  Sex: Male

DRUGS (2)
  1. HYDREA [Suspect]
     Active Substance: HYDROXYUREA
     Indication: HYPERVOLAEMIA
     Route: 048
  2. HYDREA [Suspect]
     Active Substance: HYDROXYUREA
     Indication: POLYCYTHAEMIA VERA
     Route: 065

REACTIONS (1)
  - Hernia [Recovering/Resolving]
